FAERS Safety Report 6007347-6 (Version None)
Quarter: 2008Q4

REPORT INFORMATION
  Report Type: 
  Country: None (occurrence: None)
  Receive Date: 20081217
  Receipt Date: 20080314
  Transmission Date: 20090506
  Serious: No
  Sender: FDA-Public Use
  Company Number: US-ASTRAZENECA-2008UW05155

PATIENT
  Age: 70 Year
  Sex: Female
  Weight: 90.7 kg

DRUGS (11)
  1. CRESTOR [Suspect]
     Indication: BLOOD CHOLESTEROL INCREASED
     Route: 048
     Dates: start: 20070901
  2. CRESTOR [Suspect]
     Route: 048
  3. SYNTHROID [Concomitant]
  4. ISORBIDE [Concomitant]
  5. PRINIVIL [Concomitant]
  6. INDAPAMIDE [Concomitant]
  7. ZOLOFT [Concomitant]
  8. VERAPAMIL [Concomitant]
  9. MULTI-VITAMINS [Concomitant]
  10. CITRACAL [Concomitant]
  11. ASPIRIN [Concomitant]

REACTIONS (3)
  - ABDOMINAL DISTENSION [None]
  - FLATULENCE [None]
  - GASTROINTESTINAL SOUNDS ABNORMAL [None]
